FAERS Safety Report 4512486-2 (Version None)
Quarter: 2004Q4

REPORT INFORMATION
  Report Type: 
  Country: None (occurrence: None)
  Receive Date: 20041124
  Receipt Date: 20041004
  Transmission Date: 20050328
  Serious: Yes (Hospitalization)
  Sender: FDA-Public Use
  Company Number: US_0404101993

PATIENT
  Age: 35 Year
  Sex: Male
  Weight: 104 kg

DRUGS (12)
  1. ZYPREXA [Suspect]
     Dosage: 45 MG/1 AT BEDTIME
     Dates: start: 19990101
  2. PROLIXIN [Concomitant]
  3. ARTANE (TRIMEXYPHENIDYL HYDROCHLORIDE) [Concomitant]
  4. TRIAMTERENE AND HYDROCHLOROTHIAZIDE [Concomitant]
  5. ACCUPRIL [Concomitant]
  6. ACETYLSALICYLIC ACID SRT [Concomitant]
  7. METROCLOPRAMIDE (METOCLOPRAMIDE HYDROCHLORIDE) [Concomitant]
  8. DIPHENOXYLATE W/ATROPINE SULFATE [Concomitant]
  9. ATROPINE W/HYOSCINE/HYSOCYAMINE/PHENOBARBITAL [Concomitant]
  10. ULTRACET [Concomitant]
  11. PROZAC (FLUOXEITINE HYDROCHLORIDE) [Concomitant]
  12. PRILOSEC (OMEPRAZOLE RATIOPHARM) [Concomitant]

REACTIONS (19)
  - ABDOMINAL PAIN [None]
  - ANOREXIA [None]
  - BACK PAIN [None]
  - BILIARY TRACT DISORDER [None]
  - BLOOD CHOLESTEROL ABNORMAL [None]
  - BODY TEMPERATURE INCREASED [None]
  - DIABETES MELLITUS [None]
  - DIABETIC KETOACIDOSIS [None]
  - DIARRHOEA [None]
  - DYSURIA [None]
  - GASTRITIS [None]
  - GENERAL PHYSICAL HEALTH DETERIORATION [None]
  - HAEMATOCRIT INCREASED [None]
  - HAEMOGLOBIN INCREASED [None]
  - HYPERTENSION [None]
  - HYPONATRAEMIA [None]
  - LIPASE INCREASED [None]
  - NAUSEA [None]
  - VOMITING [None]
